FAERS Safety Report 23945207 (Version 2)
Quarter: 2024Q2

REPORT INFORMATION
  Report Type: Report from Study
  Country: US (occurrence: US)
  Receive Date: 20240606
  Receipt Date: 20240612
  Transmission Date: 20240715
  Serious: Yes (Other)
  Sender: FDA-Public Use
  Company Number: US-BAYER-2024A079666

PATIENT
  Age: 60 Year
  Sex: Male
  Weight: 88.435 kg

DRUGS (22)
  1. ADEMPAS [Suspect]
     Active Substance: RIOCIGUAT
     Indication: Pulmonary arterial hypertension
     Dosage: UNK
     Dates: start: 20230404
  2. ADEMPAS [Suspect]
     Active Substance: RIOCIGUAT
     Indication: Pulmonary arterial hypertension
     Dosage: 2.5 MG, TID
     Route: 048
  3. FUROSEMIDE [Concomitant]
     Active Substance: FUROSEMIDE
  4. XIIDRA [Concomitant]
     Active Substance: LIFITEGRAST
  5. VITAMINS [Concomitant]
     Active Substance: VITAMINS
  6. POTASSIUM CHLORIDE [Concomitant]
     Active Substance: POTASSIUM CHLORIDE
  7. ACETAMINOPHEN [Concomitant]
     Active Substance: ACETAMINOPHEN
  8. COENZYME Q10 [Concomitant]
     Active Substance: DIETARY SUPPLEMENT\UBIDECARENONE
  9. TESTOSTERONE CYPIONATE [Concomitant]
     Active Substance: TESTOSTERONE CYPIONATE
  10. OPSUMIT [Concomitant]
     Active Substance: MACITENTAN
  11. PANTOPRAZOLE SODIUM [Concomitant]
     Active Substance: PANTOPRAZOLE SODIUM
  12. ZOLPIDEM TARTRATE [Concomitant]
     Active Substance: ZOLPIDEM TARTRATE
  13. AIRSUPRA [Concomitant]
     Active Substance: ALBUTEROL SULFATE\BUDESONIDE
  14. CRESTOR [Concomitant]
     Active Substance: ROSUVASTATIN CALCIUM
  15. OFEV [Concomitant]
     Active Substance: NINTEDANIB
  16. FAMOTIDINE [Concomitant]
     Active Substance: FAMOTIDINE
  17. METOPROLOL SUCCINATE [Concomitant]
     Active Substance: METOPROLOL SUCCINATE
  18. MODAFINIL [Concomitant]
     Active Substance: MODAFINIL
  19. OXYGEN [Concomitant]
     Active Substance: OXYGEN
  20. TRAZODONE HCL [Concomitant]
     Active Substance: TRAZODONE HYDROCHLORIDE
  21. ONDANSETRON HYDROCHLORIDE [Concomitant]
     Active Substance: ONDANSETRON HYDROCHLORIDE
  22. XIFAXAN [Concomitant]
     Active Substance: RIFAXIMIN

REACTIONS (6)
  - Scleroderma [None]
  - Impaired gastric emptying [Not Recovered/Not Resolved]
  - Gastrointestinal disorder [None]
  - Fatigue [None]
  - Nausea [Not Recovered/Not Resolved]
  - Dizziness [Not Recovered/Not Resolved]
